FAERS Safety Report 25857362 (Version 1)
Quarter: 2025Q3

REPORT INFORMATION
  Report Type: Report from Study
  Country: US (occurrence: US)
  Receive Date: 20250929
  Receipt Date: 20250929
  Transmission Date: 20251021
  Serious: Yes (Hospitalization, Other)
  Sender: GILEAD
  Company Number: US-GILEAD-2025-0729988

PATIENT
  Age: 44 Year
  Sex: Female

DRUGS (22)
  1. AZTREONAM LYSINE [Suspect]
     Active Substance: AZTREONAM LYSINE
     Indication: Cystic fibrosis
     Dosage: 75 MG, TID (75 MG, INHALE 1 VIAL (75 MG) VIA NEBULIZER 3 TIMES DAILY FOR 28 DAYS ON 28 DAYS OFF)
     Route: 055
     Dates: start: 20131010
  2. TOBRAMYCIN [Concomitant]
     Active Substance: TOBRAMYCIN
  3. LEVOTHYROXINE [Concomitant]
     Active Substance: LEVOTHYROXINE
  4. BUPROPION [Concomitant]
     Active Substance: BUPROPION
  5. AMITRIPTYLINE [Concomitant]
     Active Substance: AMITRIPTYLINE
  6. SPIRIVA [Concomitant]
     Active Substance: TIOTROPIUM BROMIDE MONOHYDRATE
  7. CETIRIZINE [Concomitant]
     Active Substance: CETIRIZINE HYDROCHLORIDE
  8. LORATADINE [Concomitant]
     Active Substance: LORATADINE
  9. SINGULAIR [Concomitant]
     Active Substance: MONTELUKAST SODIUM
  10. SYMBICORT [Concomitant]
     Active Substance: BUDESONIDE\FORMOTEROL FUMARATE DIHYDRATE
  11. ALBUTEROL [Concomitant]
     Active Substance: ALBUTEROL
  12. DYPHYLLINE [Concomitant]
     Active Substance: DYPHYLLINE
  13. FLONASE [Concomitant]
     Active Substance: FLUTICASONE PROPIONATE
  14. CREON [Concomitant]
     Active Substance: PANCRELIPASE AMYLASE\PANCRELIPASE LIPASE\PANCRELIPASE PROTEASE
  15. PROAIR HFA [Concomitant]
     Active Substance: ALBUTEROL SULFATE
  16. RANITIDINE [Concomitant]
     Active Substance: RANITIDINE
  17. PEG 3350 [Concomitant]
     Active Substance: POLYETHYLENE GLYCOL 3350
  18. CYCLOBENZAPRINE [Concomitant]
     Active Substance: CYCLOBENZAPRINE
  19. IBUPROFEN [Concomitant]
     Active Substance: IBUPROFEN
  20. GAS RELIEF [Concomitant]
     Active Substance: DIMETHICONE
  21. DOCUSATE [Concomitant]
     Active Substance: DOCUSATE
  22. CYANOCOBALAMIN [Concomitant]
     Active Substance: CYANOCOBALAMIN

REACTIONS (3)
  - Infective pulmonary exacerbation of cystic fibrosis [Unknown]
  - Respiratory symptom [Unknown]
  - Loss of personal independence in daily activities [Unknown]
